FAERS Safety Report 22139415 (Version 1)
Quarter: 2023Q1

REPORT INFORMATION
  Report Type: Spontaneous
  Country: GB (occurrence: None)
  Receive Date: 20230327
  Receipt Date: 20230327
  Transmission Date: 20230418
  Serious: Yes (Hospitalization, Other)
  Sender: FDA-Public Use
  Company Number: GB-INFO-20230044

PATIENT
  Age: 11 Year
  Sex: Male

DRUGS (5)
  1. ZOLEDRONIC ACID [Suspect]
     Active Substance: ZOLEDRONIC ACID
     Indication: Osteoporosis
     Route: 040
  2. DEFLAZACORT [Concomitant]
     Active Substance: DEFLAZACORT
     Dosage: (.7MG/KG/D)
  3. PERINDOPRIL [Concomitant]
     Active Substance: PERINDOPRIL
     Indication: Left ventricular dysfunction
  4. ONDANSETRON [Concomitant]
     Active Substance: ONDANSETRON
     Indication: Prophylaxis
  5. ACETAMINOPHEN [Concomitant]
     Active Substance: ACETAMINOPHEN
     Indication: Prophylaxis

REACTIONS (3)
  - Acute phase reaction [Recovered/Resolved]
  - Off label use [Unknown]
  - Intracardiac thrombus [Recovered/Resolved]
